FAERS Safety Report 10653861 (Version 4)
Quarter: 2015Q2

REPORT INFORMATION
  Report Type: Spontaneous
  Country: DE (occurrence: DE)
  Receive Date: 20141216
  Receipt Date: 20150415
  Transmission Date: 20150821
  Serious: Yes (Hospitalization, Other)
  Sender: FDA-Public Use
  Company Number: DE-ABBVIE-14P-062-1321427-00

PATIENT
  Sex: Female
  Weight: 43 kg

DRUGS (12)
  1. KREON [Suspect]
     Active Substance: PANCRELIPASE
     Indication: PANCREATECTOMY
     Dosage: 105000UNIT MORNING,120000-180000UNIT MIDDAY,105000UNIT EVENING,105000UNIT LATE EVENING
     Route: 065
  2. CIPROBAY [Suspect]
     Active Substance: CIPROFLOXACIN
     Indication: PRODUCT USED FOR UNKNOWN INDICATION
     Route: 065
     Dates: start: 201404
  3. DELIX [Concomitant]
     Active Substance: RAMIPRIL
     Indication: PRODUCT USED FOR UNKNOWN INDICATION
  4. PANTOZOL [Concomitant]
     Active Substance: PANTOPRAZOLE SODIUM
     Indication: PRODUCT USED FOR UNKNOWN INDICATION
  5. CALCIUM [Concomitant]
     Active Substance: CALCIUM
     Indication: PRODUCT USED FOR UNKNOWN INDICATION
  6. KREON [Suspect]
     Active Substance: PANCRELIPASE
     Indication: ADENOCARCINOMA
     Dosage: 60000UNIT MORNING,80000-120000UNIT MIDDAY,60000UNIT EVENING,25000-40000UNIT LATE EVENING
     Route: 065
     Dates: start: 2005
  7. TAXOTERE [Suspect]
     Active Substance: DOCETAXEL
     Indication: PRODUCT USED FOR UNKNOWN INDICATION
     Route: 065
  8. LUMINAL [Concomitant]
     Active Substance: PHENOBARBITAL SODIUM
     Indication: PRODUCT USED FOR UNKNOWN INDICATION
  9. DELIX [Concomitant]
     Active Substance: RAMIPRIL
     Dosage: ONE TABLET IN THE MORNING (5 MG)
  10. LASIX [Concomitant]
     Active Substance: FUROSEMIDE
     Indication: PRODUCT USED FOR UNKNOWN INDICATION
  11. EUTHYROX [Concomitant]
     Active Substance: LEVOTHYROXINE SODIUM
     Indication: PRODUCT USED FOR UNKNOWN INDICATION
  12. CISPLATIN. [Suspect]
     Active Substance: CISPLATIN
     Indication: PRODUCT USED FOR UNKNOWN INDICATION
     Route: 065

REACTIONS (8)
  - Steatorrhoea [Not Recovered/Not Resolved]
  - Haematochezia [Unknown]
  - Colitis ulcerative [Unknown]
  - Clostridium difficile colitis [Unknown]
  - Diarrhoea [Not Recovered/Not Resolved]
  - Weight decreased [Unknown]
  - Drug ineffective [Unknown]
  - Adenocarcinoma [Unknown]

NARRATIVE: CASE EVENT DATE: 2011
